FAERS Safety Report 24179746 (Version 1)
Quarter: 2024Q3

REPORT INFORMATION
  Report Type: Spontaneous
  Country: US (occurrence: US)
  Receive Date: 20240806
  Receipt Date: 20240806
  Transmission Date: 20241017
  Serious: No
  Sender: GALDERMA
  Company Number: US-GALDERMA-US2024011125

PATIENT

DRUGS (7)
  1. PROACTIV MD ADAPALENE ACNE TREATMENT [Suspect]
     Active Substance: ADAPALENE
     Indication: Acne
     Dosage: 1 DOSAGE FORM, QD
     Route: 061
     Dates: start: 202402, end: 202406
  2. Proactiv MD Ultra Gentle Cleanser [Concomitant]
     Indication: Acne
     Dosage: UNK UNK, BID
     Route: 061
     Dates: start: 202402, end: 202406
  3. COSMETICS [Concomitant]
     Active Substance: COSMETICS
     Indication: Acne
     Dosage: UNK UNK, BID
     Route: 061
     Dates: start: 202402, end: 202406
  4. COSMETICS [Concomitant]
     Active Substance: COSMETICS
     Indication: Acne
     Dosage: UNK UNK, BID
     Route: 061
     Dates: start: 202402, end: 202406
  5. COSMETICS [Concomitant]
     Active Substance: COSMETICS
     Indication: Acne
     Dosage: UNK UNK, BID
     Route: 061
     Dates: start: 202402, end: 202406
  6. COSMETICS [Concomitant]
     Active Substance: COSMETICS
     Indication: Acne
     Dosage: UNK UNK, BID
     Route: 061
     Dates: start: 202402, end: 202406
  7. Proactiv Zits Happen Patches [Concomitant]
     Indication: Acne
     Dosage: UNK UNK, BID
     Route: 061
     Dates: start: 202402, end: 202406

REACTIONS (2)
  - Dry skin [Recovered/Resolved]
  - Drug ineffective [Recovered/Resolved]

NARRATIVE: CASE EVENT DATE: 20240101
